FAERS Safety Report 8898445 (Version 1)
Quarter: 2012Q4

REPORT INFORMATION
  Report Type: 
  Country: US (occurrence: US)
  Receive Date: 20121108
  Receipt Date: 20121108
  Transmission Date: 20130627
  Serious: No
  Sender: FDA-Public Use
  Company Number: US-AMGEN-USASP2012024017

PATIENT
  Sex: Female

DRUGS (7)
  1. ENBREL [Suspect]
     Indication: PRODUCT USED FOR UNKNOWN INDICATION
     Dosage: 50 mg, qwk
     Route: 058
  2. METHOTREXATE /00113802/ [Concomitant]
     Dosage: UNK
  3. CELEBREX [Concomitant]
     Dosage: 50 mg, UNK
  4. LEVOTHYROXIN [Concomitant]
     Dosage: 150 mug, UNK
  5. MULTIVITAMIN                       /00097801/ [Concomitant]
     Dosage: UNK
  6. FOLIC ACID [Concomitant]
     Dosage: UNK
  7. AMBIEN [Concomitant]
     Dosage: 5 mg, UNK

REACTIONS (1)
  - Injection site bruising [Unknown]
